FAERS Safety Report 24572787 (Version 1)
Quarter: 2024Q4

REPORT INFORMATION
  Report Type: Spontaneous
  Country: AU (occurrence: AU)
  Receive Date: 20241101
  Receipt Date: 20241101
  Transmission Date: 20250115
  Serious: Yes (Other)
  Sender: AMGEN
  Company Number: AU-AMGEN-AUSSP2024211996

PATIENT
  Age: 71 Year
  Sex: Female

DRUGS (21)
  1. BEVACIZUMAB [Suspect]
     Active Substance: BEVACIZUMAB
     Indication: Ovarian cancer recurrent
     Dosage: 10 MILLIGRAM/KILOGRAM, Q2WK
     Route: 040
     Dates: start: 20220629, end: 20240516
  2. BEVACIZUMAB [Suspect]
     Active Substance: BEVACIZUMAB
     Dosage: 10 MILLIGRAM/KILOGRAM, Q2WK
     Route: 040
     Dates: start: 20240530, end: 20240530
  3. PACLITAXEL [Suspect]
     Active Substance: PACLITAXEL
     Indication: Ovarian cancer recurrent
     Dosage: 80 MILLIGRAM/SQ. METER
     Route: 040
     Dates: start: 20220629, end: 20221117
  4. PEMBROLIZUMAB [Suspect]
     Active Substance: PEMBROLIZUMAB
     Indication: Ovarian cancer recurrent
     Dosage: 400 MILLIGRAM, Q6WK
     Route: 040
     Dates: start: 20220629, end: 20240502
  5. PANTOPRAZOLE SODIUM [Concomitant]
     Active Substance: PANTOPRAZOLE SODIUM
     Indication: Gastrooesophageal reflux disease
     Dosage: 40 MILLIGRAM
     Route: 048
     Dates: start: 20220720
  6. ACETAMINOPHEN [Concomitant]
     Active Substance: ACETAMINOPHEN
     Indication: Prophylaxis
     Dosage: UNK UNK, QD
     Route: 048
     Dates: start: 20230505
  7. APIXABAN [Concomitant]
     Active Substance: APIXABAN
     Indication: Thrombosis prophylaxis
     Dosage: 5 MILLIGRAM, QD
     Route: 048
     Dates: start: 20210701
  8. NITROGLYCERIN [Concomitant]
     Active Substance: NITROGLYCERIN
     Indication: Prophylaxis
     Dosage: 10 MILLIGRAM, QD
     Route: 061
     Dates: start: 20230506
  9. HEPARIN SODIUM [Concomitant]
     Active Substance: HEPARIN SODIUM
     Indication: Product used for unknown indication
     Dosage: 50 INTERNATIONAL UNIT, QD
     Route: 040
     Dates: start: 20240516, end: 20240516
  10. METOPROLOL [Concomitant]
     Active Substance: METOPROLOL
     Indication: Hypertension
     Dosage: UNK UNK, QD
     Route: 048
     Dates: start: 20230516
  11. MOXONIDINE [Concomitant]
     Active Substance: MOXONIDINE
     Indication: Hypertension
     Dosage: UNK
  12. MOXONIDINE [Concomitant]
     Active Substance: MOXONIDINE
     Indication: Hyponatraemia
     Dosage: 400 MILLIGRAM, QD
     Route: 048
     Dates: start: 20230310
  13. PRAZOSIN HYDROCHLORIDE [Concomitant]
     Active Substance: PRAZOSIN HYDROCHLORIDE
     Indication: Hypertension
     Dosage: UNK UNK, QD
     Route: 048
     Dates: start: 20230510
  14. SODIUM CHLORIDE [Concomitant]
     Active Substance: SODIUM CHLORIDE
     Indication: Product used for unknown indication
     Dosage: 500 MILLILITER
     Route: 040
     Dates: start: 20240516, end: 20240516
  15. TELMISARTAN [Concomitant]
     Active Substance: TELMISARTAN
     Indication: Hypertension
     Dosage: UNK
     Route: 048
  16. TELMISARTAN [Concomitant]
     Active Substance: TELMISARTAN
     Indication: Hyponatraemia
     Dosage: 80 MILLIGRAM, QD
     Route: 048
     Dates: start: 20230310
  17. TEMAZEPAM [Concomitant]
     Active Substance: TEMAZEPAM
     Indication: Prophylaxis
     Dosage: UNK UNK, QD
     Route: 048
     Dates: start: 20220227
  18. MAGNESIUM ASPARTATE [Concomitant]
     Active Substance: MAGNESIUM ASPARTATE
     Dosage: UNK
     Route: 065
  19. GAVISCON [Concomitant]
     Active Substance: ALUMINUM HYDROXIDE\MAGNESIUM CARBONATE
     Dosage: UNK
     Route: 065
  20. MYLANTA ORIGINAL [Concomitant]
     Dosage: UNK
     Route: 065
  21. PRAZOSIN HYDROCHLORIDE [Concomitant]
     Active Substance: PRAZOSIN HYDROCHLORIDE
     Dosage: UNK
     Route: 065

REACTIONS (1)
  - Haemolytic anaemia [Not Recovered/Not Resolved]

NARRATIVE: CASE EVENT DATE: 20240528
